FAERS Safety Report 23882574 (Version 1)
Quarter: 2024Q2

REPORT INFORMATION
  Report Type: Spontaneous
  Country: US (occurrence: US)
  Receive Date: 20240522
  Receipt Date: 20240522
  Transmission Date: 20240716
  Serious: No
  Sender: FDA-Public Use
  Company Number: US-HALEON-2175674

PATIENT
  Sex: Female

DRUGS (8)
  1. TERBINAFINE [Suspect]
     Active Substance: TERBINAFINE
     Indication: Trichophytosis
  2. PREDNISONE [Suspect]
     Active Substance: PREDNISONE
     Indication: Dermatitis contact
     Dosage: TAPER PACK
  3. ECONAZOLE [Suspect]
     Active Substance: ECONAZOLE
     Indication: Trichophytosis
     Route: 061
  4. DIPHENHYDRAMINE [Suspect]
     Active Substance: DIPHENHYDRAMINE
     Indication: Trichophytosis
  5. KETOCONAZOLE [Suspect]
     Active Substance: KETOCONAZOLE
     Indication: Trichophytosis
     Route: 061
  6. MOMETASONE [Suspect]
     Active Substance: MOMETASONE
     Indication: Dermatitis contact
     Route: 061
  7. FLUCONAZOLE [Suspect]
     Active Substance: FLUCONAZOLE
     Indication: Product used for unknown indication
  8. FLUCONAZOLE [Suspect]
     Active Substance: FLUCONAZOLE

REACTIONS (2)
  - Condition aggravated [Recovered/Resolved]
  - Drug ineffective [Unknown]
